FAERS Safety Report 9153376 (Version 1)
Quarter: 2013Q1

REPORT INFORMATION
  Report Type: Spontaneous
  Country: DK (occurrence: None)
  Receive Date: 20130204
  Receipt Date: 20130204
  Transmission Date: 20140127
  Serious: Yes (Hospitalization)
  Sender: FDA-Public Use
  Company Number: 2013MA000764

PATIENT
  Age: 65 Year
  Sex: Female

DRUGS (4)
  1. FEVERALL [Suspect]
     Indication: PRODUCT USED FOR UNKNOWN INDICATION
     Dates: start: 20121226, end: 20121226
  2. NAPRILENE [Concomitant]
  3. NORMIX [Concomitant]
  4. LANSOPRAZOLE [Concomitant]

REACTIONS (6)
  - Presyncope [None]
  - Abdominal pain [None]
  - Vomiting [None]
  - Dysuria [None]
  - Urticaria [None]
  - Cough [None]
